FAERS Safety Report 4543106-9 (Version None)
Quarter: 2004Q4

REPORT INFORMATION
  Report Type: 
  Country: None (occurrence: None)
  Receive Date: 20041229
  Receipt Date: 20041214
  Transmission Date: 20050328
  Serious: Yes (Death)
  Sender: FDA-Public Use
  Company Number: 2004-0007846

PATIENT
  Sex: Male

DRUGS (3)
  1. VIREAD [Suspect]
     Dates: start: 20041001
  2. COMBIVIR [Concomitant]
  3. EFAVIRENZ (EFAVIRENZ) [Concomitant]

REACTIONS (2)
  - MYOCARDIAL INFARCTION [None]
  - RENAL FAILURE [None]
